FAERS Safety Report 23014319 (Version 1)
Quarter: 2023Q4

REPORT INFORMATION
  Report Type: Spontaneous
  Country: BR (occurrence: BR)
  Receive Date: 20231002
  Receipt Date: 20231002
  Transmission Date: 20240110
  Serious: Yes (Other)
  Sender: FDA-Public Use
  Company Number: BR-BoehringerIngelheim-2023-BI-262089

PATIENT
  Age: 89 Year
  Sex: Female
  Weight: 75 kg

DRUGS (5)
  1. PRADAXA [Suspect]
     Active Substance: DABIGATRAN ETEXILATE MESYLATE
     Indication: Arrhythmia
     Dosage: TWO CAPSULES A DAY, ADMINISTERED THROUGH THE TUBE.
     Dates: start: 201905, end: 202308
  2. PRADAXA [Suspect]
     Active Substance: DABIGATRAN ETEXILATE MESYLATE
     Dosage: ONE CAPSULE A DAY, ADMINISTERED THROUGH THE TUBE.
     Dates: start: 202308
  3. CARDIZEM [Suspect]
     Active Substance: DILTIAZEM HYDROCHLORIDE
     Indication: Cerebrovascular accident
     Dosage: ONE CAPSULE IN THE MORNING AND ONE IN THE EVENING ADMINISTERED VIA THE TUBE.
     Dates: start: 201905
  4. CILOSTAZOL [Concomitant]
     Active Substance: CILOSTAZOL
     Indication: Anticoagulant therapy
     Dosage: BELIEVES IT WOULD BE 100MG - ONE TABLET IN THE MORNING AND ONE IN THE EVENING ADMINISTERED THROUGH T
     Dates: start: 2019
  5. ZART [Concomitant]
     Indication: Drug therapy
     Dosage: ONE TABLET IN THE MORNING AND ONE IN THE EVENING ADMINISTERED THROUGH THE TUBE.
     Dates: start: 2017

REACTIONS (16)
  - Cerebrovascular accident [Unknown]
  - Gastrostomy [Unknown]
  - Bedridden [Unknown]
  - Diarrhoea [Recovered/Resolved]
  - Faeces discoloured [Recovered/Resolved]
  - Haemorrhage [Recovered/Resolved]
  - Enteritis infectious [Recovered/Resolved]
  - Oesophageal disorder [Unknown]
  - Asthenia [Unknown]
  - Wrong technique in product usage process [Not Recovered/Not Resolved]
  - Product physical issue [Unknown]
  - Incorrect route of product administration [Unknown]
  - Product solubility abnormal [Unknown]
  - Product adhesion issue [Unknown]
  - Reflux gastritis [Unknown]
  - Somnolence [Unknown]

NARRATIVE: CASE EVENT DATE: 20210801
